FAERS Safety Report 25939097 (Version 2)
Quarter: 2025Q4

REPORT INFORMATION
  Report Type: Spontaneous
  Country: JP (occurrence: JP)
  Receive Date: 20251020
  Receipt Date: 20251110
  Transmission Date: 20260117
  Serious: Yes (Other)
  Sender: ALEXION PHARMACEUTICALS
  Company Number: JP-ASTRAZENECA-202510JPN013037JP

PATIENT
  Age: 9 Decade
  Sex: Male

DRUGS (5)
  1. LOKELMA [Suspect]
     Active Substance: SODIUM ZIRCONIUM CYCLOSILICATE
     Dosage: UNK
     Route: 065
  2. CANDESARTAN [Concomitant]
     Active Substance: CANDESARTAN
  3. NIFEDIPINE [Concomitant]
     Active Substance: NIFEDIPINE
  4. FUROSEMIDE [Concomitant]
     Active Substance: FUROSEMIDE
  5. SODIUM BICARBONATE [Concomitant]
     Active Substance: SODIUM BICARBONATE

REACTIONS (1)
  - Hyperkalaemia [Unknown]
